FAERS Safety Report 17252155 (Version 1)
Quarter: 2020Q1

REPORT INFORMATION
  Report Type: Spontaneous
  Country: PR (occurrence: PR)
  Receive Date: 20200108
  Receipt Date: 20200108
  Transmission Date: 20200409
  Serious: Yes (Life-Threatening, Hospitalization)
  Sender: FDA-Public Use
  Company Number: None

PATIENT
  Age: 54 Year
  Sex: Male
  Weight: 55.35 kg

DRUGS (5)
  1. TAGRISSO [Suspect]
     Active Substance: OSIMERTINIB
     Indication: SMALL CELL LUNG CANCER
     Route: 048
     Dates: start: 20190808
  2. IMODIUM [Concomitant]
     Active Substance: LOPERAMIDE HYDROCHLORIDE
  3. TAGRISSO [Concomitant]
     Active Substance: OSIMERTINIB
  4. CENTRUM MULTIVITAMIN GUMMIES [Concomitant]
  5. REFRESH EYE DROPS [Concomitant]

REACTIONS (2)
  - Central nervous system lesion [None]
  - Ischaemic stroke [None]

NARRATIVE: CASE EVENT DATE: 20200104
